FAERS Safety Report 5241216-4 (Version None)
Quarter: 2007Q1

REPORT INFORMATION
  Report Type: 
  Country: None (occurrence: None)
  Receive Date: 20070220
  Receipt Date: 20070207
  Transmission Date: 20070707
  Serious: Yes (Hospitalization)
  Sender: FDA-Public Use
  Company Number: JP-BRISTOL-MYERS SQUIBB COMPANY-13560537

PATIENT
  Age: 38 Year
  Sex: Male

DRUGS (7)
  1. GATIFLO [Suspect]
     Indication: LARYNGOPHARYNGITIS
     Route: 048
     Dates: start: 20061018, end: 20061019
  2. LOXONIN [Concomitant]
     Route: 048
     Dates: start: 20061018, end: 20061019
  3. EMPYNASE [Concomitant]
     Route: 048
     Dates: start: 20061018, end: 20061019
  4. MUCODYNE [Concomitant]
     Route: 048
     Dates: start: 20061018, end: 20061019
  5. HERBAL MIXTURE [Concomitant]
     Route: 048
     Dates: start: 20060818, end: 20061019
  6. CODEINE PHOSPHATE [Concomitant]
     Route: 048
     Dates: start: 20061018, end: 20061019
  7. BROCIN [Concomitant]
     Route: 048
     Dates: start: 20061018, end: 20061019

REACTIONS (1)
  - RHABDOMYOLYSIS [None]
